FAERS Safety Report 8475000-5 (Version None)
Quarter: 2012Q2

REPORT INFORMATION
  Report Type: 
  Country: None (occurrence: None)
  Receive Date: 20120628
  Receipt Date: 20120621
  Transmission Date: 20120825
  Serious: Yes (Other)
  Sender: FDA-Public Use
  Company Number: US-BAYER-2012-063097

PATIENT
  Age: 28 Year
  Sex: Female
  Weight: 84 kg

DRUGS (1)
  1. YAZ [Suspect]
     Dosage: UNK

REACTIONS (2)
  - RETINAL ARTERY OCCLUSION [None]
  - RETINAL HAEMORRHAGE [None]
